FAERS Safety Report 7999284-2 (Version None)
Quarter: 2011Q4

REPORT INFORMATION
  Report Type: 
  Country: None (occurrence: None)
  Receive Date: 20111221
  Receipt Date: 20111214
  Transmission Date: 20120403
  Serious: Yes (Hospitalization)
  Sender: FDA-Public Use
  Company Number: US-VERTEX PHARMACEUTICALS INC.-AE-2011-005074

PATIENT
  Sex: Male

DRUGS (3)
  1. INCIVEK [Suspect]
     Indication: HEPATITIS C
     Route: 048
     Dates: start: 20111031
  2. PEGASYS [Concomitant]
     Indication: HEPATITIS C
     Route: 058
     Dates: start: 20111031
  3. RIBAVIRIN [Concomitant]
     Indication: HEPATITIS C
     Route: 048
     Dates: start: 20111031

REACTIONS (8)
  - WHITE BLOOD CELL DISORDER [None]
  - FATIGUE [None]
  - RASH [None]
  - PRURITUS [None]
  - AMMONIA INCREASED [None]
  - CHILLS [None]
  - WEIGHT DECREASED [None]
  - RED BLOOD CELL ABNORMALITY [None]
